FAERS Safety Report 7626009-2 (Version None)
Quarter: 2011Q3

REPORT INFORMATION
  Report Type: 
  Country: None (occurrence: None)
  Receive Date: 20110721
  Receipt Date: 20110714
  Transmission Date: 20111222
  Serious: Yes (Death, Hospitalization)
  Sender: FDA-Public Use
  Company Number: TN-SANOFI-AVENTIS-2011SA036275

PATIENT
  Age: 76 Year
  Sex: Female

DRUGS (15)
  1. POTASSIUM CHLORIDE [Concomitant]
     Route: 048
     Dates: end: 20110615
  2. ATORVASTATIN [Concomitant]
     Route: 048
     Dates: end: 20110615
  3. PLAVIX [Suspect]
     Route: 048
     Dates: start: 20110524, end: 20110615
  4. AMIODARONE HCL [Concomitant]
     Route: 048
     Dates: start: 20110521, end: 20110615
  5. INSULATARD [Concomitant]
     Route: 058
     Dates: start: 20110521, end: 20110615
  6. PLAVIX [Suspect]
     Indication: MYOCARDIAL INFARCTION
     Route: 048
     Dates: start: 20110416, end: 20110521
  7. ASPEGIC 325 [Suspect]
     Indication: MYOCARDIAL INFARCTION
     Route: 048
     Dates: start: 20110401, end: 20110521
  8. ASPEGIC 325 [Suspect]
     Route: 048
     Dates: start: 20110401, end: 20110521
  9. ASPIRIN [Suspect]
     Indication: MYOCARDIAL INFARCTION
     Route: 048
     Dates: start: 20110524, end: 20110615
  10. AMLODIPINE BESYLATE [Concomitant]
     Route: 048
     Dates: end: 20110615
  11. PLAVIX [Suspect]
     Route: 048
     Dates: start: 20110416, end: 20110521
  12. PLAVIX [Suspect]
     Route: 048
     Dates: start: 20110524, end: 20110615
  13. LASIX [Concomitant]
     Route: 048
     Dates: end: 20110615
  14. ASPIRIN [Suspect]
     Route: 048
     Dates: start: 20110524, end: 20110615
  15. AMARYL [Concomitant]
     Route: 048
     Dates: end: 20110521

REACTIONS (2)
  - CARDIAC ARREST [None]
  - GASTRIC HAEMORRHAGE [None]
